FAERS Safety Report 23159669 (Version 1)
Quarter: 2023Q4

REPORT INFORMATION
  Report Type: Spontaneous
  Country: MX (occurrence: None)
  Receive Date: 20231108
  Receipt Date: 20231108
  Transmission Date: 20240109
  Serious: Yes (Other)
  Sender: FDA-Public Use
  Company Number: MX-ROCHE-3452272

PATIENT
  Age: 53 Year
  Sex: Female
  Weight: 57.5 kg

DRUGS (10)
  1. TRASTUZUMAB [Suspect]
     Active Substance: TRASTUZUMAB
     Indication: HER2 positive breast cancer
     Dosage: DOSE AND FREQUENCY WERE NOT REPORTED. 5 CYCLES
     Route: 065
     Dates: end: 20200209
  2. TRASTUZUMAB [Suspect]
     Active Substance: TRASTUZUMAB
     Dosage: DOSE AND FREQUENCY WERE NOT REPORTED. 5 CYCLES
     Route: 065
     Dates: start: 20200923
  3. CAPECITABINE [Suspect]
     Active Substance: CAPECITABINE
     Indication: HER2 positive breast cancer
     Dosage: DOSAGE TEXT (B.4.K.6/G.K.4.R.8) DOSE AND FREQUENCY WERE NOT REPORTED
     Route: 048
  4. PACLITAXEL [Concomitant]
     Active Substance: PACLITAXEL
     Dosage: 8 CYCLES, FREQUENCY NOT REPORTED
  5. DOCETAXEL [Concomitant]
     Active Substance: DOCETAXEL\DOCETAXEL ANHYDROUS
     Indication: HER2 positive breast cancer
  6. CARBOPLATIN [Concomitant]
     Active Substance: CARBOPLATIN
     Indication: HER2 positive breast cancer
  7. DEXAMETHASONE [Concomitant]
     Active Substance: DEXAMETHASONE
     Indication: Premedication
     Dosage: SINGLE DOSE
     Route: 042
  8. PALONOSETRON [Concomitant]
     Active Substance: PALONOSETRON
     Indication: Premedication
     Dosage: SINGLE DOSE
     Route: 042
  9. DIPHENHYDRAMINE [Concomitant]
     Active Substance: DIPHENHYDRAMINE
     Indication: Premedication
     Dosage: SINGLE DOSE
     Route: 042
  10. DENOSUMAB [Concomitant]
     Active Substance: DENOSUMAB
     Indication: Premedication
     Dosage: SINGLE DOSE
     Route: 058

REACTIONS (6)
  - Lung disorder [Recovering/Resolving]
  - Ill-defined disorder [Recovering/Resolving]
  - Disease recurrence [Recovering/Resolving]
  - Diarrhoea [Unknown]
  - Paronychia [Unknown]
  - Palmar-plantar erythrodysaesthesia syndrome [Unknown]

NARRATIVE: CASE EVENT DATE: 20230201
